FAERS Safety Report 12205802 (Version 1)
Quarter: 2016Q1

REPORT INFORMATION
  Report Type: Not Available
  Country: US (occurrence: US)
  Receive Date: 20160323
  Receipt Date: 20160323
  Transmission Date: 20160526
  Serious: Yes (Life-Threatening, Hospitalization)
  Sender: FDA-Public Use
  Company Number: US-ANIPHARMA-2016-US-001374

PATIENT

DRUGS (1)
  1. OXYCODONE (NON-SPECIFIC) [Suspect]
     Active Substance: OXYCODONE
     Route: 048

REACTIONS (2)
  - Suicide attempt [Unknown]
  - Cerebral ischaemia [Unknown]
